FAERS Safety Report 8771646 (Version 1)
Quarter: 2012Q4

REPORT INFORMATION
  Report Type: 
  Country: US (occurrence: US)
  Receive Date: 20120905
  Receipt Date: 20120905
  Transmission Date: 20130627
  Serious: No
  Sender: FDA-Public Use
  Company Number: US-ASTRAZENECA-2012SE60064

PATIENT
  Age: 68 Year
  Sex: Female
  Weight: 61.2 kg

DRUGS (1)
  1. ATACAND [Suspect]
     Route: 048

REACTIONS (2)
  - Hypertension [Unknown]
  - Incorrect storage of drug [Unknown]
